FAERS Safety Report 19485508 (Version 1)
Quarter: 2021Q3

REPORT INFORMATION
  Report Type: Report from Study
  Country: NO (occurrence: NO)
  Receive Date: 20210702
  Receipt Date: 20210702
  Transmission Date: 20211014
  Serious: Yes (Hospitalization)
  Sender: FDA-Public Use
  Company Number: NO-ROCHE-2777394

PATIENT
  Age: 59 Year

DRUGS (8)
  1. PRASUGREL. [Concomitant]
     Active Substance: PRASUGREL
  2. ASPRIN [Concomitant]
     Active Substance: ASPIRIN
  3. SODIUM CHLORIDE. [Concomitant]
     Active Substance: SODIUM CHLORIDE
  4. METOPROLOL. [Concomitant]
     Active Substance: METOPROLOL
  5. TOCILIZUMAB. [Suspect]
     Active Substance: TOCILIZUMAB
     Indication: MYOCARDIAL INFARCTION
     Route: 042
     Dates: start: 20190819
  6. BUMETANIDE. [Concomitant]
     Active Substance: BUMETANIDE
  7. EMPAGLIFLOZIN [Concomitant]
     Active Substance: EMPAGLIFLOZIN
  8. RAMIPRIL. [Concomitant]
     Active Substance: RAMIPRIL

REACTIONS (1)
  - Cerebrovascular accident [Recovered/Resolved]

NARRATIVE: CASE EVENT DATE: 20200525
